FAERS Safety Report 22587294 (Version 1)
Quarter: 2023Q2

REPORT INFORMATION
  Report Type: Spontaneous
  Country: PL (occurrence: None)
  Receive Date: 20230612
  Receipt Date: 20230612
  Transmission Date: 20230721
  Serious: Yes (Other)
  Sender: FDA-Public Use
  Company Number: PL-Merck Healthcare KGaA-9407709

PATIENT
  Age: 32 Year
  Sex: Female

DRUGS (1)
  1. MAVENCLAD [Suspect]
     Active Substance: CLADRIBINE
     Indication: Multiple sclerosis
     Dosage: THERAPY: ONE TABLET FOR 5 DAYS
     Dates: start: 20230511

REACTIONS (1)
  - Paraparesis [Unknown]

NARRATIVE: CASE EVENT DATE: 20230501
